FAERS Safety Report 8459408-X (Version None)
Quarter: 2012Q2

REPORT INFORMATION
  Report Type: 
  Country: None (occurrence: None)
  Receive Date: 20120622
  Receipt Date: 20120613
  Transmission Date: 20120825
  Serious: Yes (Hospitalization, Other)
  Sender: FDA-Public Use
  Company Number: DE-JNJFOC-20120606079

PATIENT
  Age: 41 Year
  Sex: Male

DRUGS (2)
  1. RISPERDAL [Suspect]
     Indication: PRODUCT USED FOR UNKNOWN INDICATION
     Route: 048
     Dates: start: 20120301
  2. RISPERDAL [Suspect]
     Dosage: 0-5 MG DAILY SINCE A LONGER TIME
     Route: 048
     Dates: end: 20120229

REACTIONS (1)
  - SUICIDE ATTEMPT [None]
